FAERS Safety Report 8916425 (Version 7)
Quarter: 2013Q3

REPORT INFORMATION
  Report Type: Report from Study
  Country: US (occurrence: US)
  Receive Date: 20121120
  Receipt Date: 20130731
  Transmission Date: 20140515
  Serious: Yes (Hospitalization)
  Sender: FDA-Public Use
  Company Number: US-PFIZER INC-2012272911

PATIENT
  Age: 55 Year
  Sex: Female
  Weight: 87 kg

DRUGS (7)
  1. TOFACITINIB CITRATE [Suspect]
     Indication: TRANSPLANT REJECTION
     Dosage: 5 MG, BID
     Route: 048
     Dates: start: 20050811, end: 20121028
  2. PREDNISONE [Suspect]
     Indication: TRANSPLANT REJECTION
     Dosage: 5 MG, 1X/DAY
     Route: 048
     Dates: start: 20070710
  3. CELLCEPT [Suspect]
     Indication: TRANSPLANT REJECTION
     Dosage: 500 MG, 1X/DAY
     Route: 048
     Dates: start: 20120810
  4. AFEDITAB CR [Concomitant]
     Indication: HYPERTENSION
     Dosage: 60 MG, 1X/DAY
     Route: 048
     Dates: start: 20101210
  5. ASPIRIN [Concomitant]
     Indication: PROPHYLAXIS
     Dosage: 81 MG, 1X/DAY
     Route: 048
  6. CALCITRIOL [Concomitant]
     Indication: HYPOCALCAEMIA
     Dosage: 0.25 UG, 1X/DAY
     Route: 048
     Dates: start: 20120720
  7. MACROBID [Concomitant]
     Indication: UROSEPSIS
     Dosage: 100 MG, 1X/DAY
     Route: 048

REACTIONS (4)
  - Septic shock [Recovered/Resolved]
  - Renal tubular necrosis [Recovered/Resolved]
  - Ileus [Recovered/Resolved]
  - Respiratory distress [Recovered/Resolved]
